FAERS Safety Report 4479911-7 (Version None)
Quarter: 2004Q3

REPORT INFORMATION
  Report Type: 
  Country: None (occurrence: None)
  Receive Date: 20040923
  Receipt Date: 20040608
  Transmission Date: 20050211
  Serious: No
  Sender: FDA-Public Use
  Company Number: USA040669678

PATIENT
  Age: 56 Year
  Sex: Female
  Weight: 57 kg

DRUGS (6)
  1. FORTEO [Suspect]
     Indication: OSTEOPOROSIS
     Dosage: 20 UG/1 DAY
     Dates: start: 20040511, end: 20040527
  2. SYNTHROID [Concomitant]
  3. PLAQUENIL [Concomitant]
  4. APO-METOPROLOL (METOPROLOL TARTRATE) [Concomitant]
  5. DIURETIC [Concomitant]
  6. CALCIUM [Concomitant]

REACTIONS (6)
  - ARTHRALGIA [None]
  - HYPOTHYROIDISM [None]
  - JOINT STIFFNESS [None]
  - JOINT SWELLING [None]
  - RASH [None]
  - SYSTEMIC LUPUS ERYTHEMATOSUS [None]
